FAERS Safety Report 6530059-7 (Version None)
Quarter: 2010Q1

REPORT INFORMATION
  Report Type: 
  Country: None (occurrence: None)
  Receive Date: 20100104
  Receipt Date: 20091229
  Transmission Date: 20100710
  Serious: Yes (Hospitalization)
  Sender: FDA-Public Use
  Company Number: SPV1-2009-02403

PATIENT
  Age: 9 Year
  Sex: Male
  Weight: 26.8 kg

DRUGS (4)
  1. DAYTRANA [Suspect]
     Indication: ATTENTION DEFICIT/HYPERACTIVITY DISORDER
     Dosage: 20 MG, 1X/ DAY:QD, TRANSDERMAL; 30 MG, 1X/DAY:QD, TRANSDERMAL
     Route: 062
     Dates: start: 20091116, end: 20091120
  2. DAYTRANA [Suspect]
     Indication: ATTENTION DEFICIT/HYPERACTIVITY DISORDER
     Dosage: 20 MG, 1X/ DAY:QD, TRANSDERMAL; 30 MG, 1X/DAY:QD, TRANSDERMAL
     Route: 062
     Dates: start: 20091130
  3. CELEXA /00582602/ (CITALOPRAM HYDROBROMIDE) TABLET [Concomitant]
  4. VITAMINS /00067501/ (ASCORBIC ACID, ERGOCALCIFEROL, NICOTINAMIDE, RETI [Concomitant]

REACTIONS (5)
  - ABDOMINAL PAIN LOWER [None]
  - APPENDICITIS [None]
  - CALCINOSIS [None]
  - DRUG INEFFECTIVE [None]
  - FAECALITH [None]
